FAERS Safety Report 18264859 (Version 1)
Quarter: 2020Q3

REPORT INFORMATION
  Report Type: Spontaneous
  Country: DE (occurrence: DE)
  Receive Date: 20200915
  Receipt Date: 20200915
  Transmission Date: 20201103
  Serious: Yes (Other)
  Sender: FDA-Public Use
  Company Number: DE-JNJFOC-20200912714

PATIENT
  Sex: Female

DRUGS (1)
  1. DOLORMIN (IBUPROFEN) [Suspect]
     Active Substance: IBUPROFEN
     Indication: HEADACHE
     Route: 048

REACTIONS (2)
  - Foreign body in throat [Unknown]
  - Wrong technique in product usage process [Unknown]
